FAERS Safety Report 18916161 (Version 1)
Quarter: 2021Q1

REPORT INFORMATION
  Report Type: Spontaneous
  Country: HU (occurrence: HU)
  Receive Date: 20210219
  Receipt Date: 20210219
  Transmission Date: 20210420
  Serious: Yes (Other)
  Sender: FDA-Public Use
  Company Number: HU-MYLANLABS-2021M1008054

PATIENT
  Age: 67 Year
  Sex: Female

DRUGS (6)
  1. RAWEL [Concomitant]
     Active Substance: INDAPAMIDE
     Indication: POLYURIA
     Dosage: UNK
  2. ELIQUIS [Concomitant]
     Active Substance: APIXABAN
     Indication: PROPHYLAXIS
     Dosage: UNK
  3. RYTMONORM 150 MG [Suspect]
     Active Substance: PROPAFENONE
     Indication: HEART RATE NORMAL
     Dosage: TWICE A DAY (1 TABLET IN THE MORNING AND 1 IN THE EVENING)
  4. LOKREN [Concomitant]
     Active Substance: BETAXOLOL HYDROCHLORIDE
     Indication: HYPERTENSION
     Dosage: UNK
  5. KARBIS [Concomitant]
     Active Substance: CANDESARTAN CILEXETIL
     Indication: HYPERTENSION
     Dosage: UNK
  6. APO?FAMOTIDIN [Concomitant]
     Indication: GASTROOESOPHAGEAL REFLUX DISEASE
     Dosage: UNK

REACTIONS (3)
  - Cardiac fibrillation [Recovered/Resolved]
  - Arrhythmia [Recovered/Resolved]
  - Product quality issue [Unknown]

NARRATIVE: CASE EVENT DATE: 202011
